FAERS Safety Report 5604576-8 (Version None)
Quarter: 2008Q1

REPORT INFORMATION
  Report Type: 
  Country: None (occurrence: None)
  Receive Date: 20080128
  Receipt Date: 20080116
  Transmission Date: 20080703
  Serious: Yes (Other)
  Sender: FDA-Public Use
  Company Number: FR-WYE-G00902108

PATIENT
  Sex: Male

DRUGS (9)
  1. EFFEXOR [Suspect]
     Indication: DEPRESSION
     Route: 048
     Dates: start: 20070101, end: 20070130
  2. EFFEXOR [Suspect]
     Route: 048
     Dates: start: 20070131, end: 20071001
  3. EFFEXOR [Suspect]
     Route: 048
     Dates: start: 20071217, end: 20080106
  4. EFFEXOR [Suspect]
     Route: 048
     Dates: start: 20080107, end: 20080110
  5. NOLVADEX [Suspect]
     Indication: PROSTATE CANCER
     Dosage: UNKNOWN
  6. CASODEX [Suspect]
     Indication: PROSTATE CANCER
     Dosage: UNKNOWN
  7. LEXOMIL [Concomitant]
     Dosage: 1/4 TO 1/2 TABLET DAILY
     Route: 048
     Dates: start: 20070131, end: 20070401
  8. LEXOMIL [Concomitant]
     Dosage: 1/2 TABLET DAILY
     Route: 048
     Dates: start: 20070621
  9. LYSANXIA [Concomitant]
     Dosage: 10 MG DAILY
     Route: 048
     Dates: start: 20070401, end: 20070620

REACTIONS (9)
  - ASTHENIA [None]
  - DRUG WITHDRAWAL SYNDROME [None]
  - FATIGUE [None]
  - HYPERGLYCAEMIA [None]
  - HYPERHIDROSIS [None]
  - LOSS OF LIBIDO [None]
  - MALAISE [None]
  - SUICIDAL IDEATION [None]
  - UNEVALUABLE EVENT [None]
